FAERS Safety Report 5548225-6 (Version None)
Quarter: 2007Q4

REPORT INFORMATION
  Report Type: 
  Country: None (occurrence: None)
  Receive Date: 20071206
  Receipt Date: 20071129
  Transmission Date: 20080405
  Serious: Yes (Hospitalization)
  Sender: FDA-Public Use
  Company Number: 2007SP024021

PATIENT
  Age: 36 Year
  Sex: Female
  Weight: 48 kg

DRUGS (6)
  1. TEMODAL [Suspect]
     Indication: ANAPLASTIC ASTROCYTOMA
     Dosage: 75 MG/M2; QD; PO
     Route: 048
     Dates: start: 20061019, end: 20061120
  2. NASEA-OD [Concomitant]
  3. MAGMITT [Concomitant]
  4. RABEPRAZOLE SODIUM [Concomitant]
  5. ULCERLMIN [Concomitant]
  6. DEPAKENE [Concomitant]

REACTIONS (2)
  - MENINGITIS ASEPTIC [None]
  - POST PROCEDURAL COMPLICATION [None]
